FAERS Safety Report 16994478 (Version 1)
Quarter: 2019Q4

REPORT INFORMATION
  Report Type: Report from Study
  Country: US (occurrence: US)
  Receive Date: 20191105
  Receipt Date: 20191105
  Transmission Date: 20200122
  Serious: Yes (Hospitalization, Other)
  Sender: FDA-Public Use
  Company Number: US-JNJFOC-20191100391

PATIENT
  Age: 70 Year
  Sex: Male

DRUGS (2)
  1. IMBRUVICA [Suspect]
     Active Substance: IBRUTINIB
     Indication: CHRONIC LYMPHOCYTIC LEUKAEMIA
     Dosage: 420 MG, QD
     Route: 048
     Dates: start: 20190827, end: 20191003
  2. ASPIRIN                            /00002701/ [Concomitant]
     Active Substance: ASPIRIN

REACTIONS (6)
  - Skin lesion [Unknown]
  - Cellulitis [Unknown]
  - Platelet count decreased [Unknown]
  - Pyrexia [Unknown]
  - Asthenia [Unknown]
  - Stomatitis [Unknown]

NARRATIVE: CASE EVENT DATE: 20191019
